FAERS Safety Report 10335051 (Version 1)
Quarter: 2014Q3

REPORT INFORMATION
  Report Type: Spontaneous
  Country: US (occurrence: None)
  Receive Date: 20140722
  Receipt Date: 20140722
  Transmission Date: 20150326
  Serious: No
  Sender: FDA-Public Use
  Company Number: None

PATIENT

DRUGS (1)
  1. BACLOFEN. [Suspect]
     Active Substance: BACLOFEN
     Dosage: SUSPENSION 5MG/5ML BOTTLE

REACTIONS (6)
  - Circumstance or information capable of leading to device use error [None]
  - Bradycardia [None]
  - Respiratory tract infection [None]
  - Somnolence [None]
  - Accidental overdose [None]
  - Product label confusion [None]
